FAERS Safety Report 5491388-1 (Version None)
Quarter: 2007Q4

REPORT INFORMATION
  Report Type: 
  Country: None (occurrence: None)
  Receive Date: 20071018
  Receipt Date: 20071001
  Transmission Date: 20080405
  Serious: Yes (Hospitalization)
  Sender: FDA-Public Use
  Company Number: 20070251

PATIENT
  Age: 77 Year
  Sex: Male

DRUGS (11)
  1. VENOFER [Suspect]
     Indication: IRON DEFICIENCY ANAEMIA
     Dosage: 200 MG X 1 INTRAVENOUS
     Route: 042
     Dates: start: 20070612
  2. ENALAPRIL MALEATE [Concomitant]
  3. HYDROCHLOROTHIAZIDE [Concomitant]
  4. OMEPRAZOLE [Concomitant]
  5. CIPROFLOXACIN [Concomitant]
  6. DICLOFENAC SODIUM [Concomitant]
  7. TAMSULOSIN HYDROCHLORIDE [Concomitant]
  8. FELODIPINE [Concomitant]
  9. METOPROLOL TARTRATE [Concomitant]
  10. AMIODARONE HYDROCHLORIDE [Concomitant]
  11. PRAZEPAM [Concomitant]

REACTIONS (2)
  - INFUSION RELATED REACTION [None]
  - UROSEPSIS [None]
